FAERS Safety Report 26116309 (Version 2)
Quarter: 2025Q4

REPORT INFORMATION
  Report Type: Spontaneous
  Country: EU (occurrence: EU)
  Receive Date: 20251203
  Receipt Date: 20251219
  Transmission Date: 20260118
  Serious: Yes (Other)
  Sender: AUROBINDO
  Company Number: EU-ABBVIE-6331197

PATIENT
  Age: 73 Year
  Sex: Male

DRUGS (10)
  1. RIVASTIGMINE [Suspect]
     Active Substance: RIVASTIGMINE
     Indication: Product used for unknown indication
     Dosage: 3 MILLIGRAM
     Route: 065
  2. FOSCARBIDOPA\FOSLEVODOPA [Suspect]
     Active Substance: FOSCARBIDOPA\FOSLEVODOPA
     Indication: Parkinson^s disease
     Dosage: UNK (CRN: 0.25ML/H, CR: 0.40 ML/H, CRH: 0.42 ML/H, ED: 0.10 MLLAST ADMIN DATE: 2025)
  3. FOSCARBIDOPA\FOSLEVODOPA [Suspect]
     Active Substance: FOSCARBIDOPA\FOSLEVODOPA
     Dosage: UNK (ALL DOSE REDUCED BY 0.3)
  4. FOSCARBIDOPA\FOSLEVODOPA [Suspect]
     Active Substance: FOSCARBIDOPA\FOSLEVODOPA
     Dosage: UNK (CRN: 0.25 ML/H, CR: 0.40 ML/H, CRH: 0.42 ML/H, ED: 0.10 ML)
  5. FOSCARBIDOPA\FOSLEVODOPA [Suspect]
     Active Substance: FOSCARBIDOPA\FOSLEVODOPA
     Dosage: UNK (CRN: 0,26ML/H; CR: 0,42ML/H; CRH: 0,45ML/H; ED: 0,15ML)
  6. FOSCARBIDOPA\FOSLEVODOPA [Suspect]
     Active Substance: FOSCARBIDOPA\FOSLEVODOPA
     Dosage: UNK (REDUCED IT TO 0.37)
  7. FOSCARBIDOPA\FOSLEVODOPA [Suspect]
     Active Substance: FOSCARBIDOPA\FOSLEVODOPA
     Dosage: UNK (AT 0.39)
  8. FOSCARBIDOPA\FOSLEVODOPA [Suspect]
     Active Substance: FOSCARBIDOPA\FOSLEVODOPA
     Dosage: CRN: 0.25ML/H, CR: 0.40 ML/H, CRH: 0.42 ML/H, ED: 0.10 MLLAST ADMIN DATE: 2025
  9. CLOZAPINE [Concomitant]
     Active Substance: CLOZAPINE
     Indication: Product used for unknown indication
     Dosage: UNK
     Route: 065
  10. CLOZAPINE [Concomitant]
     Active Substance: CLOZAPINE
     Dosage: 25 MILLIGRAM (INCREASED QUARTER TABLET)
     Route: 065

REACTIONS (23)
  - Dementia [Unknown]
  - Hallucination [Not Recovered/Not Resolved]
  - Tremor [Not Recovered/Not Resolved]
  - Asthenia [Recovered/Resolved]
  - Nausea [Unknown]
  - Rash papular [Unknown]
  - Pain [Unknown]
  - Urinary incontinence [Recovered/Resolved]
  - Confusional state [Not Recovered/Not Resolved]
  - Hypersomnia [Recovered/Resolved]
  - Disorientation [Not Recovered/Not Resolved]
  - Diplopia [Not Recovered/Not Resolved]
  - Cognitive disorder [Recovered/Resolved]
  - Mobility decreased [Not Recovered/Not Resolved]
  - Fall [Not Recovered/Not Resolved]
  - Joint swelling [Unknown]
  - Erythema [Unknown]
  - Joint warmth [Unknown]
  - Lymphadenopathy [Unknown]
  - Walking aid user [Unknown]
  - Hypoacusis [Unknown]
  - Salivary hypersecretion [Unknown]
  - Condition aggravated [Not Recovered/Not Resolved]

NARRATIVE: CASE EVENT DATE: 20250101
